FAERS Safety Report 15166347 (Version 2)
Quarter: 2018Q3

REPORT INFORMATION
  Report Type: Spontaneous
  Country: US (occurrence: US)
  Receive Date: 20180719
  Receipt Date: 20180810
  Transmission Date: 20181010
  Serious: Yes (Other)
  Sender: FDA-Public Use
  Company Number: US-OTSUKA-2018_012253

PATIENT
  Age: 60 Year
  Sex: Female

DRUGS (4)
  1. REXULTI [Suspect]
     Active Substance: BREXPIPRAZOLE
     Dosage: 3 MG, QD
     Route: 048
     Dates: start: 20171220, end: 20180302
  2. REXULTI [Suspect]
     Active Substance: BREXPIPRAZOLE
     Indication: ADJUVANT THERAPY
     Dosage: 0.5 UNK, UNK
     Route: 065
  3. REXULTI [Suspect]
     Active Substance: BREXPIPRAZOLE
     Dosage: 2 MG, UNK
     Route: 065
     Dates: start: 20171120
  4. REXULTI [Suspect]
     Active Substance: BREXPIPRAZOLE
     Indication: MAJOR DEPRESSION
     Dosage: 1 UNK, UNK
     Route: 065

REACTIONS (11)
  - Loss of personal independence in daily activities [Unknown]
  - Cerebrovascular accident [Unknown]
  - Condition aggravated [Unknown]
  - Staring [Unknown]
  - Lethargy [Unknown]
  - Weight decreased [Unknown]
  - Parkinsonism [Recovered/Resolved]
  - Impaired self-care [Unknown]
  - Somnolence [Unknown]
  - Movement disorder [Unknown]
  - Eye movement disorder [Unknown]
